FAERS Safety Report 19828642 (Version 2)
Quarter: 2021Q3

REPORT INFORMATION
  Report Type: Report from Study
  Country: US (occurrence: US)
  Receive Date: 20210914
  Receipt Date: 20210924
  Transmission Date: 20211014
  Serious: Yes (Hospitalization)
  Sender: FDA-Public Use
  Company Number: US-KARYOPHARM-2021KPT001150

PATIENT
  Age: 87 Year
  Sex: Female
  Weight: 53 kg

DRUGS (23)
  1. CARBOPLATIN. [Suspect]
     Active Substance: CARBOPLATIN
     Indication: DIFFUSE LARGE B-CELL LYMPHOMA
     Dosage: 5356 MG, 1X/3 WEEKS
     Route: 042
     Dates: start: 20210614
  2. METOPROLOL. [Concomitant]
     Active Substance: METOPROLOL
     Indication: ATRIAL FIBRILLATION
     Dosage: 2.5 MG, QD
     Dates: start: 20210409
  3. SELINEXOR [Suspect]
     Active Substance: SELINEXOR
     Indication: DIFFUSE LARGE B-CELL LYMPHOMA
     Dosage: 60 MG, WEEKLY
     Route: 048
     Dates: start: 20210614, end: 20210621
  4. PEGFILGRASTIM [Concomitant]
     Active Substance: PEGFILGRASTIM
     Indication: PROPHYLAXIS
     Dosage: 6 MG, 1X/2 WEEKS
     Route: 058
     Dates: start: 20210621
  5. NORMAL SALINE [Concomitant]
     Active Substance: SODIUM CHLORIDE
     Indication: SUPPORTIVE CARE
     Dosage: 1000 ML, WEEKLY
     Route: 042
     Dates: start: 20210614
  6. CENTRUM SILVER +50 [Concomitant]
     Active Substance: MINERALS\VITAMINS
     Indication: SUPPLEMENTATION THERAPY
     Dosage: UNK UNK, QD
     Dates: start: 202011
  7. SENNA S [Concomitant]
     Active Substance: DOCUSATE SODIUM\SENNA LEAF
     Indication: CONSTIPATION
     Dosage: UNK, PRN
     Route: 048
     Dates: start: 20210628
  8. VITAMIN B12 [Concomitant]
     Active Substance: CYANOCOBALAMIN
     Indication: SUPPLEMENTATION THERAPY
     Dosage: UNK
     Dates: start: 202011
  9. ONDANSETRON [Concomitant]
     Active Substance: ONDANSETRON
     Dosage: 8 MG, Q8H
     Route: 048
     Dates: start: 20210713, end: 20210715
  10. CARBOXYMETHYLCELLULOSE [Concomitant]
     Active Substance: CARBOXYMETHYLCELLULOSE
     Indication: DRY EYE
     Dosage: 1 GTT DROPS, PRN
     Route: 047
  11. GEMCITABINE. [Suspect]
     Active Substance: GEMCITABINE
     Indication: DIFFUSE LARGE B-CELL LYMPHOMA
     Dosage: 1000 MG/M2, WEEKLY ON DAYS 1 AND 8 OF A 21?DAY CYCLE
     Route: 042
     Dates: start: 20210614
  12. ONDANSETRON [Concomitant]
     Active Substance: ONDANSETRON
     Indication: PROPHYLAXIS OF NAUSEA AND VOMITING
     Dosage: 8 MG, Q8H
     Route: 048
     Dates: start: 20210614, end: 20210616
  13. ONDANSETRON [Concomitant]
     Active Substance: ONDANSETRON
     Dosage: 8 MG, Q8H
     Route: 048
     Dates: start: 20210621, end: 20210623
  14. ONDANSETRON [Concomitant]
     Active Substance: ONDANSETRON
     Dosage: 8 MG, Q8H
     Route: 048
     Dates: start: 20210706, end: 20210708
  15. APREPITANT. [Concomitant]
     Active Substance: APREPITANT
     Indication: PROPHYLAXIS
     Dosage: 130 MG, WEEKLY
     Route: 042
     Dates: start: 20210614
  16. RITUXIMAB. [Suspect]
     Active Substance: RITUXIMAB
     Indication: DIFFUSE LARGE B-CELL LYMPHOMA
     Dosage: 375 MG/M2, 1X/3 WEEKS
     Route: 042
     Dates: start: 20210614
  17. DEXAMETHASONE. [Suspect]
     Active Substance: DEXAMETHASONE
     Indication: DIFFUSE LARGE B-CELL LYMPHOMA
     Dosage: 10 MG, QD ON DAYS 1, 2, 3, AND 4 OF A 21?DAY CYCLE
     Route: 042
     Dates: start: 20210614
  18. APIXABAN [Concomitant]
     Active Substance: APIXABAN
     Indication: ATRIAL FIBRILLATION
     Dosage: 2.5 MG, BID
     Dates: start: 20210409
  19. PROMETHAZINE [Concomitant]
     Active Substance: PROMETHAZINE HYDROCHLORIDE
     Indication: PROPHYLAXIS OF NAUSEA AND VOMITING
     Dosage: 12.5 MG, PRN
     Route: 048
     Dates: start: 20210614
  20. DELSYM [Concomitant]
     Active Substance: DEXTROMETHORPHAN
     Indication: COUGH
     Dosage: UNK, PRN
     Route: 048
     Dates: start: 20210628
  21. SELINEXOR [Suspect]
     Active Substance: SELINEXOR
     Dosage: 40 MG, WEEKLY
     Route: 048
     Dates: start: 20210706
  22. ALLOPURINOL. [Concomitant]
     Active Substance: ALLOPURINOL
     Indication: PROPHYLAXIS
     Dosage: 200 MG, QD
     Route: 048
     Dates: start: 20210613
  23. BIOTIN [Concomitant]
     Active Substance: BIOTIN
     Indication: SUPPLEMENTATION THERAPY
     Dosage: UNK
     Dates: start: 202011

REACTIONS (1)
  - Acute kidney injury [Recovered/Resolved with Sequelae]

NARRATIVE: CASE EVENT DATE: 20210902
